FAERS Safety Report 24339359 (Version 1)
Quarter: 2024Q3

REPORT INFORMATION
  Report Type: Spontaneous
  Country: GB (occurrence: GB)
  Receive Date: 20240919
  Receipt Date: 20240919
  Transmission Date: 20241017
  Serious: Yes (Other)
  Sender: ANI
  Company Number: GB-ANIPHARMA-2024-UK-000191

PATIENT
  Age: 59 Year
  Sex: Female
  Weight: 10 kg

DRUGS (2)
  1. CANDESARTAN [Suspect]
     Active Substance: CANDESARTAN
     Indication: Product used for unknown indication
     Dosage: 2 MG DAILY
     Dates: start: 20240807
  2. AMITRIPTYLINE HYDROCHLORIDE [Concomitant]
     Active Substance: AMITRIPTYLINE HYDROCHLORIDE
     Dosage: PER DAY OR AS DIRECTED
     Dates: start: 20240604

REACTIONS (7)
  - Dizziness [Unknown]
  - Hyperhidrosis [Unknown]
  - Fatigue [Unknown]
  - Asthenia [Unknown]
  - Muscle spasms [Unknown]
  - Nausea [Unknown]
  - Back pain [Recovered/Resolved]
